FAERS Safety Report 5279659-5 (Version None)
Quarter: 2007Q1

REPORT INFORMATION
  Report Type: 
  Country: None (occurrence: None)
  Receive Date: 20070323
  Receipt Date: 20070308
  Transmission Date: 20070707
  Serious: Yes (Life-Threatening, Hospitalization)
  Sender: FDA-Public Use
  Company Number: 20073574

PATIENT
  Sex: Female

DRUGS (2)
  1. LIORESAL [Suspect]
     Indication: MUSCLE SPASTICITY
     Dosage: UNK MCG, DAILY, INTRATHECAL
     Route: 037
  2. SODIUM CHLORIDE 0.9% [Concomitant]

REACTIONS (6)
  - CONVULSION [None]
  - DROOLING [None]
  - HYPOTONIA [None]
  - LETHARGY [None]
  - LOSS OF CONSCIOUSNESS [None]
  - PARALYSIS [None]
